FAERS Safety Report 16960529 (Version 2)
Quarter: 2020Q2

REPORT INFORMATION
  Report Type: Spontaneous
  Country: US (occurrence: US)
  Receive Date: 20191025
  Receipt Date: 20200501
  Transmission Date: 20200713
  Serious: Yes (Other)
  Sender: FDA-Public Use
  Company Number: US-SUN PHARMACEUTICAL INDUSTRIES LTD-2019R1-224634

PATIENT
  Sex: Male

DRUGS (2)
  1. DOXYCYCLINE. [Suspect]
     Active Substance: DOXYCYCLINE
     Dosage: 200 MILLIGRAM, DAILY
     Route: 065
     Dates: start: 201910
  2. DOXYCYCLINE. [Suspect]
     Active Substance: DOXYCYCLINE
     Indication: CELLULITIS
     Dosage: 200 MILLIGRAM, DAILY(1 EVERY 12 HOURS)
     Route: 065
     Dates: start: 20190702

REACTIONS (2)
  - Tendon dislocation [Not Recovered/Not Resolved]
  - Tendon disorder [Not Recovered/Not Resolved]
